FAERS Safety Report 5076058-6 (Version None)
Quarter: 2006Q3

REPORT INFORMATION
  Report Type: 
  Country: None (occurrence: None)
  Receive Date: 20060809
  Receipt Date: 20060706
  Transmission Date: 20061208
  Serious: Yes (Hospitalization)
  Sender: FDA-Public Use
  Company Number: JP-ABBOTT-06P-087-0337742-00

PATIENT
  Sex: Female
  Weight: 45 kg

DRUGS (6)
  1. KLARICID [Suspect]
     Indication: BRONCHITIS
     Route: 048
     Dates: start: 20060619, end: 20060621
  2. HOKUNALIN TAPE [Suspect]
     Indication: BRONCHITIS
     Route: 062
     Dates: start: 20060619, end: 20060624
  3. SALICYLAMIDE/ACETAMINOPHEN/ANHYDROUSCAFFEINE/PROMETHAZIN METHYLENEDISA [Suspect]
     Indication: BRONCHITIS
     Route: 048
     Dates: start: 20060619, end: 20060624
  4. MOXIFLOXACIN HYDROCHLORIDE [Suspect]
     Indication: BRONCHITIS
     Route: 048
     Dates: start: 20060621, end: 20060624
  5. AMBROXOL HYDROCHLORIDE [Suspect]
     Indication: BRONCHITIS
     Route: 048
     Dates: start: 20060619, end: 20060624
  6. DEXTROMETHORPHAN HYDROBROMIDE [Suspect]
     Indication: BRONCHITIS
     Route: 048
     Dates: start: 20060619, end: 20060624

REACTIONS (4)
  - ALVEOLITIS ALLERGIC [None]
  - EOSINOPHILIC PNEUMONIA [None]
  - PNEUMONITIS [None]
  - PYREXIA [None]
